FAERS Safety Report 6534810-1 (Version None)
Quarter: 2010Q1

REPORT INFORMATION
  Report Type: 
  Country: None (occurrence: None)
  Receive Date: 20100112
  Receipt Date: 20100104
  Transmission Date: 20100710
  Serious: Yes (Hospitalization, Other)
  Sender: FDA-Public Use
  Company Number: US-BAXTER-2009BH018001

PATIENT
  Age: 42 Year
  Sex: Female
  Weight: 58 kg

DRUGS (14)
  1. HEPARIN SODIUM INJECTION [Suspect]
     Indication: PULMONARY EMBOLISM
     Route: 065
     Dates: start: 20071115, end: 20071115
  2. HEPARIN SODIUM INJECTION [Suspect]
     Indication: SURGERY
     Route: 065
     Dates: start: 20071115, end: 20071115
  3. HEPARIN SODIUM INJECTION [Suspect]
     Indication: DEEP VEIN THROMBOSIS
     Route: 065
     Dates: start: 20071115, end: 20071115
  4. HEPARIN SODIUM INJECTION [Suspect]
     Route: 040
     Dates: start: 20071116, end: 20071116
  5. HEPARIN SODIUM INJECTION [Suspect]
     Route: 040
     Dates: start: 20071116, end: 20071116
  6. HEPARIN SODIUM INJECTION [Suspect]
     Route: 040
     Dates: start: 20071116, end: 20071116
  7. HEPARIN SODIUM INJECTION [Suspect]
     Route: 065
     Dates: start: 20071116, end: 20071120
  8. HEPARIN SODIUM INJECTION [Suspect]
     Route: 065
     Dates: start: 20071116, end: 20071120
  9. HEPARIN SODIUM INJECTION [Suspect]
     Route: 065
     Dates: start: 20071116, end: 20071120
  10. HEPARIN SODIUM INJECTION [Suspect]
     Route: 041
     Dates: start: 20071205, end: 20071212
  11. HEPARIN SODIUM INJECTION [Suspect]
     Route: 041
     Dates: start: 20071205, end: 20071212
  12. HEPARIN SODIUM INJECTION [Suspect]
     Route: 041
     Dates: start: 20071205, end: 20071212
  13. HEPARIN SODIUM [Suspect]
     Indication: DEEP VEIN THROMBOSIS
     Route: 041
     Dates: start: 20071213, end: 20071214
  14. DAILY MULTIVITAMIN [Concomitant]
     Indication: VITAMIN SUPPLEMENTATION
     Route: 048

REACTIONS (13)
  - ABDOMINAL DISCOMFORT [None]
  - ABDOMINAL PAIN UPPER [None]
  - DEEP VEIN THROMBOSIS [None]
  - DIARRHOEA [None]
  - DIZZINESS [None]
  - FEELING HOT [None]
  - HEART RATE INCREASED [None]
  - NIGHT SWEATS [None]
  - PERITONEAL HAEMORRHAGE [None]
  - THROMBOSIS [None]
  - UTERINE HAEMORRHAGE [None]
  - VENA CAVA THROMBOSIS [None]
  - WAIST CIRCUMFERENCE INCREASED [None]
